FAERS Safety Report 4822208-3 (Version None)
Quarter: 2005Q4

REPORT INFORMATION
  Report Type: 
  Country: None (occurrence: None)
  Receive Date: 20051103
  Receipt Date: 20051014
  Transmission Date: 20060501
  Serious: Yes (Hospitalization)
  Sender: FDA-Public Use
  Company Number: USA0510110838

PATIENT
  Age: 75 Year
  Sex: Female

DRUGS (3)
  1. HUMULIN R [Suspect]
     Indication: DIABETES MELLITUS
     Dates: end: 20051012
  2. HUMALOG [Suspect]
     Indication: DIABETES MELLITUS
     Dates: start: 20051012
  3. LANTUS [Concomitant]

REACTIONS (3)
  - CEREBROVASCULAR ACCIDENT [None]
  - DIABETES MELLITUS INADEQUATE CONTROL [None]
  - HAEMORRHAGE [None]
